FAERS Safety Report 8512403-4 (Version None)
Quarter: 2012Q3

REPORT INFORMATION
  Report Type: 
  Country: None (occurrence: None)
  Receive Date: 20120716
  Receipt Date: 20120712
  Transmission Date: 20120928
  Serious: Yes (Death)
  Sender: FDA-Public Use
  Company Number: US-ROCHE-1025949

PATIENT
  Sex: Female
  Weight: 69.008 kg

DRUGS (5)
  1. XELODA [Suspect]
     Indication: BREAST CANCER METASTATIC
     Route: 048
     Dates: start: 20111207
  2. SIMVASTATIN [Concomitant]
  3. ONDANSETRON [Concomitant]
  4. GABAPENTIN [Concomitant]
  5. LOVENOX [Concomitant]
     Route: 058

REACTIONS (5)
  - RETCHING [None]
  - PARAESTHESIA [None]
  - DEATH [None]
  - FATIGUE [None]
  - HYPOAESTHESIA [None]
